FAERS Safety Report 18020262 (Version 1)
Quarter: 2020Q3

REPORT INFORMATION
  Report Type: Spontaneous
  Country: US (occurrence: US)
  Receive Date: 20200714
  Receipt Date: 20200714
  Transmission Date: 20201103
  Serious: No
  Sender: FDA-Public Use
  Company Number: US-GLAXOSMITHKLINE-US2020AMR125286

PATIENT
  Sex: Male

DRUGS (2)
  1. NICORETTE [Suspect]
     Active Substance: NICOTINE
     Indication: SMOKING CESSATION THERAPY
     Dosage: UNK
     Dates: start: 2018
  2. NICORETTE [Suspect]
     Active Substance: NICOTINE
     Dosage: UNK
     Dates: start: 202005

REACTIONS (2)
  - Knee arthroplasty [Unknown]
  - Drug withdrawal syndrome [Unknown]
